FAERS Safety Report 5806702-4 (Version None)
Quarter: 2008Q3

REPORT INFORMATION
  Report Type: 
  Country: None (occurrence: None)
  Receive Date: 20080710
  Receipt Date: 20080702
  Transmission Date: 20090109
  Serious: Yes (Death, Hospitalization)
  Sender: FDA-Public Use
  Company Number: US-ABBOTT-08P-163-0460314-00

PATIENT
  Sex: Male

DRUGS (10)
  1. GENGRAF [Suspect]
     Indication: RENAL TRANSPLANT
     Dosage: 50 MG IN AM AND PM
     Route: 048
     Dates: start: 20070101, end: 20080629
  2. ACETAMINOPHEN [Concomitant]
     Indication: PAIN
     Dosage: EVERY 4 HOURS, AS NEEDED
     Route: 048
     Dates: end: 20080629
  3. HYDROMORPHONE HCL [Concomitant]
     Indication: PAIN
     Dosage: 1 ML SYRINGE, EVERY 4 HOURS
     Route: 042
     Dates: end: 20080629
  4. HYDROMORPHONE HYDROCHLORIDE [Concomitant]
     Indication: PAIN
     Dosage: EVERY 6 HOURS, AS NEEDED
     Route: 048
     Dates: end: 20080629
  5. SIMVASTATIN [Concomitant]
     Indication: DRUG USE FOR UNKNOWN INDICATION
     Dosage: DAILY
     Route: 048
     Dates: start: 20071010
  6. GABAPENTIN [Concomitant]
     Indication: DRUG USE FOR UNKNOWN INDICATION
     Route: 048
  7. FUROSEMIDE [Concomitant]
     Indication: DRUG USE FOR UNKNOWN INDICATION
     Dosage: DAILY
     Route: 048
  8. MYCOPHENOLATE MOFETIL [Concomitant]
     Indication: DRUG USE FOR UNKNOWN INDICATION
     Route: 048
  9. PREDNISOLONE [Concomitant]
     Indication: DRUG USE FOR UNKNOWN INDICATION
     Dosage: DAILY
     Route: 048
  10. UNKNOWN MEDICATIONS [Concomitant]
     Indication: DRUG USE FOR UNKNOWN INDICATION

REACTIONS (2)
  - CARDIAC FAILURE ACUTE [None]
  - MYOCARDIAL INFARCTION [None]
